FAERS Safety Report 7215765-3 (Version None)
Quarter: 2011Q1

REPORT INFORMATION
  Report Type: 
  Country: None (occurrence: None)
  Receive Date: 20110107
  Receipt Date: 20101227
  Transmission Date: 20110831
  Serious: Yes (Life-Threatening, Hospitalization)
  Sender: FDA-Public Use
  Company Number: JP-PFIZER INC-2010179650

PATIENT
  Age: 60 Year
  Sex: Female
  Weight: 52 kg

DRUGS (7)
  1. FLUOROURACIL [Suspect]
     Indication: BREAST CANCER
     Dosage: UNK, EVERY 3 WEEKS
     Route: 041
     Dates: start: 20100118, end: 20100118
  2. ORGADRONE [Concomitant]
     Dosage: 11.4 MG, EVERY 3 WEEKS
     Route: 041
     Dates: start: 20100118, end: 20100118
  3. BETAMETHASONE [Concomitant]
     Dosage: 8 MG, 2X/DAY
     Route: 048
     Dates: start: 20100118, end: 20100118
  4. PRIMPERAN TAB [Concomitant]
     Indication: PROPHYLAXIS OF NAUSEA AND VOMITING
     Dosage: 10 MG, 3X/DAY
     Route: 048
     Dates: start: 20100118, end: 20100118
  5. GRANISETRON [Concomitant]
     Indication: BREAST CANCER
     Dosage: 3 MG, EVERY 3 WEEKS
     Route: 041
     Dates: start: 20100118, end: 20100118
  6. FARMORUBICIN [Suspect]
     Indication: BREAST CANCER
     Dosage: UNK, EVERY 3 WEEKS
     Route: 041
     Dates: start: 20100118, end: 20100118
  7. RAMELTEON [Concomitant]
     Indication: PROPHYLAXIS OF NAUSEA AND VOMITING
     Dosage: 0.1 MG, 1X/DAY
     Route: 048
     Dates: start: 20100118, end: 20100118

REACTIONS (2)
  - PULMONARY MYCOSIS [None]
  - FEBRILE NEUTROPENIA [None]
